FAERS Safety Report 6387156-9 (Version None)
Quarter: 2009Q4

REPORT INFORMATION
  Report Type: 
  Country: None (occurrence: None)
  Receive Date: 20091002
  Receipt Date: 20090928
  Transmission Date: 20100525
  Serious: Yes (Life-Threatening, Hospitalization)
  Sender: FDA-Public Use
  Company Number: PHHO2009NL06477

PATIENT
  Sex: Male
  Weight: 118 kg

DRUGS (4)
  1. RAD 666 RAD+TAB [Suspect]
     Indication: LIVER TRANSPLANT
     Dosage: 6 MG
     Route: 048
     Dates: start: 20090224, end: 20090609
  2. TACROLIMUS [Suspect]
     Indication: TRANSPLANT REJECTION
     Dosage: 4 MG/DAY
     Route: 048
     Dates: start: 20090525, end: 20090629
  3. SIMVASTATIN [Concomitant]
  4. SOLU-MEDROL [Concomitant]

REACTIONS (4)
  - DRUG INEFFECTIVE [None]
  - HEPATIC ENZYME INCREASED [None]
  - LIVER GRAFT LOSS [None]
  - LIVER TRANSPLANT REJECTION [None]
